FAERS Safety Report 8520720-7 (Version None)
Quarter: 2012Q3

REPORT INFORMATION
  Report Type: 
  Country: None (occurrence: None)
  Receive Date: 20120709
  Receipt Date: 20120625
  Transmission Date: 20120928
  Serious: Yes (Other)
  Sender: FDA-Public Use
  Company Number: 2011MA001523

PATIENT
  Sex: Male

DRUGS (26)
  1. HYDROCODONE BITARTRATE AND ACETAMINOPHEN [Concomitant]
  2. ALLOPURINOL [Concomitant]
  3. DOXYCYCLINE [Concomitant]
  4. CEPHALEXIN [Concomitant]
  5. OMEPRAZOLE [Concomitant]
  6. FUROSEMIDE [Concomitant]
  7. LEXAPRO [Concomitant]
  8. HYDROCHLOROTHIAZIDE [Concomitant]
  9. METOCLOPRAMIDE [Suspect]
     Dosage: 10 MG;BID;PO
     Route: 048
     Dates: start: 20070126, end: 20100401
  10. LISINOPRIL [Concomitant]
  11. KLOR-CON [Concomitant]
  12. OXYCODONE HCL AND ACETAMINOPHEN [Concomitant]
  13. PREDNISONE [Concomitant]
  14. ROPINIOROLE [Concomitant]
  15. SIMVASTATIN [Concomitant]
  16. CLONAZEPAM [Concomitant]
  17. RELION/NOVOLIN [Concomitant]
  18. CYCLOBENAZPRINE [Concomitant]
  19. KETOROLAC TROMETHAMINE [Concomitant]
  20. PROPOXYPHENE NAPSYLATE AND ACETAMINOPHEN [Concomitant]
  21. NOVOLIN 70/30 [Concomitant]
  22. AMLODIPINE [Concomitant]
  23. NAPROXEN [Concomitant]
  24. PROAIR HFA [Concomitant]
  25. GLYBURIDE [Concomitant]
  26. ZYMAR [Concomitant]

REACTIONS (6)
  - EMOTIONAL DISORDER [None]
  - DYSKINESIA [None]
  - AKATHISIA [None]
  - EXTRAPYRAMIDAL DISORDER [None]
  - TARDIVE DYSKINESIA [None]
  - ECONOMIC PROBLEM [None]
